FAERS Safety Report 9354283 (Version 1)
Quarter: 2013Q2

REPORT INFORMATION
  Report Type: Spontaneous
  Country: US (occurrence: US)
  Receive Date: 20130618
  Receipt Date: 20130618
  Transmission Date: 20140414
  Serious: Yes (Other)
  Sender: FDA-Public Use
  Company Number: US-ASTRAZENECA-2013SE42251

PATIENT
  Age: 71 Year
  Sex: Female
  Weight: 56.2 kg

DRUGS (9)
  1. ZESTRIL [Suspect]
     Indication: BLOOD PRESSURE ABNORMAL
     Route: 048
  2. ZESTRIL [Suspect]
     Indication: BLOOD PRESSURE ABNORMAL
     Dosage: GENERIC
     Route: 065
  3. ZESTRIL [Suspect]
     Indication: BLOOD PRESSURE ABNORMAL
     Route: 048
  4. HYDROCHLOROTHIAZIDE [Suspect]
     Indication: BLOOD PRESSURE ABNORMAL
     Route: 065
  5. BETADINE [Concomitant]
     Dates: start: 1970
  6. PHISOHEX [Concomitant]
     Dates: start: 1970
  7. MULTIVITES [Concomitant]
     Indication: ILL-DEFINED DISORDER
     Dosage: DAILY
     Route: 048
  8. CALCIUM [Concomitant]
     Indication: ILL-DEFINED DISORDER
     Route: 048
  9. BCOMPLEX [Concomitant]
     Indication: ILL-DEFINED DISORDER
     Dosage: DAILY
     Route: 048

REACTIONS (7)
  - Cataract [Unknown]
  - Blood pressure inadequately controlled [Recovered/Resolved]
  - Back pain [Unknown]
  - Dermatitis allergic [Not Recovered/Not Resolved]
  - Rash pustular [Recovered/Resolved]
  - Urticaria [Recovered/Resolved]
  - Drug ineffective [Unknown]
